FAERS Safety Report 8811444 (Version 1)
Quarter: 2012Q4

REPORT INFORMATION
  Report Type: Spontaneous
  Country: US (occurrence: None)
  Receive Date: 20120925
  Receipt Date: 20120925
  Transmission Date: 20130627
  Serious: Yes (Hospitalization)
  Sender: FDA-Public Use
  Company Number: None

PATIENT
  Age: 82 Year
  Weight: 73.48 kg

DRUGS (3)
  1. GEMCITABINE [Suspect]
     Route: 042
  2. NEULASTA [Suspect]
  3. CISPLATIN [Suspect]
     Route: 042

REACTIONS (2)
  - Cardiac failure congestive [None]
  - Chest discomfort [None]
